FAERS Safety Report 7334797-8 (Version None)
Quarter: 2011Q1

REPORT INFORMATION
  Report Type: 
  Country: None (occurrence: None)
  Receive Date: 20110307
  Receipt Date: 20110301
  Transmission Date: 20110831
  Serious: Yes (Other)
  Sender: FDA-Public Use
  Company Number: US-AMGEN-USASP2011011921

PATIENT
  Sex: Male

DRUGS (2)
  1. IVIGLOB-EX [Concomitant]
  2. NPLATE [Suspect]
     Indication: THROMBOCYTOPENIA
     Dates: start: 20081008, end: 20100804

REACTIONS (1)
  - THERAPEUTIC RESPONSE DECREASED [None]
